FAERS Safety Report 10154070 (Version 3)
Quarter: 2014Q4

REPORT INFORMATION
  Report Type: Spontaneous
  Country: US (occurrence: None)
  Receive Date: 20140502
  Receipt Date: 20141231
  Transmission Date: 20150528
  Serious: Yes (Death, Hospitalization, Other)
  Sender: FDA-Public Use
  Company Number: UTC-047840

PATIENT
  Age: 73 Year
  Sex: Female
  Weight: 72.1 kg

DRUGS (4)
  1. TYVASO [Suspect]
     Active Substance: TREPROSTINIL
     Indication: COR PULMONALE CHRONIC
     Route: 055
     Dates: start: 20140404
  2. ADCIRCA (TADALAFIL) UNKNOWN [Concomitant]
  3. COUMADIN [Concomitant]
     Active Substance: WARFARIN SODIUM
  4. REVATIO (SILDENAFIL CITRATE) [Concomitant]

REACTIONS (8)
  - Localised oedema [None]
  - Confusional state [None]
  - Blood electrolytes abnormal [None]
  - Cough [None]
  - Oedema peripheral [None]
  - Oxygen saturation decreased [None]
  - Cellulitis [None]
  - Dyspnoea [None]

NARRATIVE: CASE EVENT DATE: 201404
